FAERS Safety Report 8034441-0 (Version None)
Quarter: 2012Q1

REPORT INFORMATION
  Report Type: 
  Country: None (occurrence: None)
  Receive Date: 20120110
  Receipt Date: 20120102
  Transmission Date: 20120608
  Serious: Yes (Death, Life-Threatening, Hospitalization, Other)
  Sender: FDA-Public Use
  Company Number: FR-BRISTOL-MYERS SQUIBB COMPANY-16325557

PATIENT
  Age: 54 Year
  Sex: Male

DRUGS (13)
  1. KAYEXALATE [Concomitant]
  2. ARANESP [Concomitant]
  3. CORDARONE [Concomitant]
  4. ASPIRIN [Suspect]
     Route: 048
     Dates: end: 20110928
  5. RAMIPRIL [Concomitant]
  6. HYDROCORTISONE [Concomitant]
  7. CRESTOR [Concomitant]
  8. TRAMADOL HCL [Concomitant]
  9. ACETAMINOPHEN [Concomitant]
  10. NEXIUM [Concomitant]
  11. COUMADIN [Suspect]
     Dosage: 1DF=1 UNIT NOS
     Route: 048
     Dates: start: 20110925, end: 20110928
  12. CALCIUM ACETATE [Concomitant]
  13. DELURSAN [Concomitant]

REACTIONS (7)
  - INTERNATIONAL NORMALISED RATIO INCREASED [None]
  - CARDIAC DEATH [None]
  - SHOCK HAEMORRHAGIC [None]
  - ANAEMIA [None]
  - INTESTINAL ISCHAEMIA [None]
  - HAEMATOMA [None]
  - SEPTIC SHOCK [None]
